FAERS Safety Report 10264514 (Version 3)
Quarter: 2015Q3

REPORT INFORMATION
  Report Type: Spontaneous
  Country: US (occurrence: US)
  Receive Date: 20140627
  Receipt Date: 20150826
  Transmission Date: 20151125
  Serious: Yes (Other)
  Sender: FDA-Public Use
  Company Number: US-SUN PHARMACEUTICAL INDUSTRIES LTD-2014SUN01423

PATIENT

DRUGS (5)
  1. ALPRAZOLAM TABS C-IV 2MG [Suspect]
     Active Substance: ALPRAZOLAM
     Indication: GENERALISED ANXIETY DISORDER
     Dosage: TAKING 2 TABLETS (4 MG) THREE TIMES DAILY AGAINST PRESCRIBED DOSE OF 2 MG TID
     Route: 065
     Dates: start: 201311
  2. ALPRAZOLAM TABS C-IV 2MG [Suspect]
     Active Substance: ALPRAZOLAM
     Indication: INSOMNIA
     Dosage: LAST REFILL; 2 MG TID
     Route: 065
     Dates: start: 20140609
  3. NIACIN. [Concomitant]
     Active Substance: NIACIN
  4. ALPRAZOLAM TABS C-IV 2MG [Suspect]
     Active Substance: ALPRAZOLAM
     Indication: SEIZURE
  5. ST. JOHN^S WORT [Concomitant]
     Active Substance: ST. JOHN^S WORT

REACTIONS (9)
  - Panic attack [Not Recovered/Not Resolved]
  - Restless legs syndrome [Not Recovered/Not Resolved]
  - Agitation [Not Recovered/Not Resolved]
  - Impaired work ability [None]
  - Social problem [None]
  - Generalised anxiety disorder [Not Recovered/Not Resolved]
  - Insomnia [Not Recovered/Not Resolved]
  - Drug ineffective [Not Recovered/Not Resolved]
  - Product quality issue [None]

NARRATIVE: CASE EVENT DATE: 20140609
